FAERS Safety Report 6689893-5 (Version None)
Quarter: 2010Q2

REPORT INFORMATION
  Report Type: 
  Country: None (occurrence: None)
  Receive Date: 20100421
  Receipt Date: 20100406
  Transmission Date: 20101027
  Serious: Yes (Other)
  Sender: FDA-Public Use
  Company Number: US-BAYER-201013503GPV

PATIENT
  Age: 59 Year
  Sex: Male
  Weight: 80 kg

DRUGS (9)
  1. SORAFENIB [Suspect]
     Indication: PROSTATE CANCER
     Dosage: TOTAL DAILY DOSE: 800 MG  UNIT DOSE: 200 MG
     Route: 048
     Dates: start: 20091130, end: 20100118
  2. SORAFENIB [Suspect]
     Dosage: TOTAL DAILY DOSE: 400 MG  UNIT DOSE: 200 MG
     Route: 048
     Dates: start: 20100218, end: 20100318
  3. RDEA119 [Suspect]
     Indication: PROSTATE CANCER
     Dosage: TOTAL DAILY DOSE: 60 MG
     Route: 048
     Dates: start: 20091130, end: 20100118
  4. RDEA119 [Suspect]
     Dosage: TOTAL DAILY DOSE: 20 MG
     Route: 048
     Dates: start: 20100211, end: 20100318
  5. ACTOS [Concomitant]
     Indication: DIABETES MELLITUS
     Route: 048
     Dates: start: 20090401
  6. AMLODIPINE [Concomitant]
     Indication: HYPERTENSION
     Route: 048
  7. DIOVAN [Concomitant]
     Indication: HYPERTENSION
     Dosage: 80-12.5 MG
     Route: 048
  8. GLIPIZIDE W/METFORMIN [Concomitant]
     Indication: DIABETES MELLITUS
     Dosage: 5-/500 MG
     Route: 048
  9. PRAVASTATIN [Concomitant]
     Indication: HYPERLIPIDAEMIA
     Route: 048

REACTIONS (4)
  - DYSPNOEA [None]
  - LEFT VENTRICULAR DYSFUNCTION [None]
  - MALIGNANT NEOPLASM PROGRESSION [None]
  - PROSTATE CANCER [None]
